FAERS Safety Report 20725059 (Version 3)
Quarter: 2023Q2

REPORT INFORMATION
  Report Type: Spontaneous
  Country: JP (occurrence: None)
  Receive Date: 20220419
  Receipt Date: 20230519
  Transmission Date: 20230722
  Serious: Yes (Other)
  Sender: FDA-Public Use
  Company Number: 2022A152449

PATIENT
  Age: 49 Year
  Sex: Male

DRUGS (3)
  1. LYNPARZA [Suspect]
     Active Substance: OLAPARIB
     Indication: Hormone-refractory prostate cancer
     Dosage: DOSE UNKNOWN
     Route: 048
  2. LH-RH [Concomitant]
     Indication: Hormone-refractory prostate cancer
     Dosage: DOSE UNKNOWN
  3. DENOSUMAB [Concomitant]
     Active Substance: DENOSUMAB
     Indication: Hormone-refractory prostate cancer
     Dosage: DOSE UNKNOWN

REACTIONS (1)
  - Malignant neoplasm progression [Unknown]
